FAERS Safety Report 20154835 (Version 3)
Quarter: 2022Q1

REPORT INFORMATION
  Report Type: Spontaneous
  Country: US (occurrence: US)
  Receive Date: 20211207
  Receipt Date: 20220128
  Transmission Date: 20220423
  Serious: No
  Sender: FDA-Public Use
  Company Number: US-BEH-2021138896

PATIENT
  Sex: Female

DRUGS (2)
  1. HIZENTRA [Suspect]
     Active Substance: HUMAN IMMUNOGLOBULIN G
     Indication: Stiff person syndrome
     Dosage: 30 GRAM, QW
     Route: 058
     Dates: start: 20211105
  2. HIZENTRA [Suspect]
     Active Substance: HUMAN IMMUNOGLOBULIN G
     Dosage: 30 GRAM, QW
     Route: 058
     Dates: start: 202106

REACTIONS (19)
  - Infection [Unknown]
  - No adverse event [Unknown]
  - Off label use [Unknown]
  - Infusion site mass [Unknown]
  - Infusion site scar [Unknown]
  - Peripheral swelling [Unknown]
  - Peripheral swelling [Unknown]
  - Erythema [Unknown]
  - Abdominal distension [Unknown]
  - Muscle spasms [Unknown]
  - Muscle tightness [Unknown]
  - Dyspnoea [Unknown]
  - Peripheral swelling [Unknown]
  - Peripheral swelling [Unknown]
  - Joint swelling [Unknown]
  - Nausea [Unknown]
  - Rash erythematous [Unknown]
  - Rash pruritic [Unknown]
  - Skin warm [Unknown]
